FAERS Safety Report 24419196 (Version 2)
Quarter: 2024Q4

REPORT INFORMATION
  Report Type: Report from Study
  Country: US (occurrence: US)
  Receive Date: 20241009
  Receipt Date: 20241018
  Transmission Date: 20250115
  Serious: No
  Sender: ROCHE
  Company Number: US-ROCHE-3465900

PATIENT
  Age: 44 Year
  Sex: Male

DRUGS (6)
  1. CATHFLO ACTIVASE [Suspect]
     Active Substance: ALTEPLASE
     Indication: Complication associated with device
     Dosage: VIAL?DATE OF SERVICE REPORTED ON 17/NOV/2023
     Route: 065
  2. CATHFLO ACTIVASE [Suspect]
     Active Substance: ALTEPLASE
     Dosage: VIAL?DATE OF SERVICE REPORTED ON 18/NOV/2023
     Route: 065
  3. CATHFLO ACTIVASE [Suspect]
     Active Substance: ALTEPLASE
     Dosage: VIAL?DATE OF SERVICE REPORTED ON 19/NOV/2023.
     Route: 065
  4. PULMOZYME [Suspect]
     Active Substance: DORNASE ALFA
     Indication: Complication associated with device
     Dosage: DATE OF SERVICE REPORTED ON 17/NOV/2023
     Route: 065
  5. PULMOZYME [Suspect]
     Active Substance: DORNASE ALFA
     Dosage: DATE OF SERVICE REPORTED ON 18/NOV/2023.
     Route: 065
  6. PULMOZYME [Suspect]
     Active Substance: DORNASE ALFA
     Dosage: DARE OF SERVICE REPORTED ON 19/NOV/2023.
     Route: 065

REACTIONS (3)
  - No adverse event [Unknown]
  - Off label use [Unknown]
  - Off label use [Unknown]
